FAERS Safety Report 4745635-1 (Version None)
Quarter: 2005Q3

REPORT INFORMATION
  Report Type: 
  Country: None (occurrence: None)
  Receive Date: 20050815
  Receipt Date: 20050803
  Transmission Date: 20060218
  Serious: Yes (Life-Threatening)
  Sender: FDA-Public Use
  Company Number: 230003M05ITA

PATIENT
  Age: 35 Year
  Sex: Male

DRUGS (2)
  1. REBIF [Suspect]
     Indication: MULTIPLE SCLEROSIS
     Dosage: 44 MCG, 3 IN 1 WEEKS
     Dates: start: 20040205
  2. ATORVATATIN                /01326101/ [Concomitant]

REACTIONS (4)
  - BLOOD FIBRINOGEN INCREASED [None]
  - CEREBRAL HAEMORRHAGE [None]
  - GAMMA-GLUTAMYLTRANSFERASE ABNORMAL [None]
  - NYSTAGMUS [None]
